FAERS Safety Report 11484233 (Version 1)
Quarter: 2015Q3

REPORT INFORMATION
  Report Type: Spontaneous
  Country: US (occurrence: US)
  Receive Date: 20150903
  Receipt Date: 20150903
  Transmission Date: 20151125
  Serious: No
  Sender: FDA-Public Use
  Company Number: US-ELI_LILLY_AND_COMPANY-US201204010037

PATIENT
  Age: 57 Year
  Sex: Male

DRUGS (10)
  1. NEURONTIN [Concomitant]
     Active Substance: GABAPENTIN
  2. SUBOXONE [Concomitant]
     Active Substance: BUPRENORPHINE HYDROCHLORIDE\NALOXONE HYDROCHLORIDE
     Dosage: 8 MG, UNK
  3. LUNESTA [Concomitant]
     Active Substance: ESZOPICLONE
     Dosage: UNK, UNKNOWN
  4. CYMBALTA [Suspect]
     Active Substance: DULOXETINE HYDROCHLORIDE
     Indication: DEPRESSION
     Dosage: 60 MG, QD
     Route: 048
     Dates: start: 20120131
  5. TEMAZEPAM. [Concomitant]
     Active Substance: TEMAZEPAM
     Dosage: 60 MG, UNK
  6. CYMBALTA [Suspect]
     Active Substance: DULOXETINE HYDROCHLORIDE
     Dosage: 90 MG, UNKNOWN
     Route: 048
     Dates: start: 20120403, end: 20120417
  7. ZOLPIDEM [Concomitant]
     Active Substance: ZOLPIDEM\ZOLPIDEM TARTRATE
     Dosage: UNK, UNKNOWN
  8. FLUOXETINE [Concomitant]
     Active Substance: FLUOXETINE\FLUOXETINE HYDROCHLORIDE
     Dosage: 30 MG, UNK
  9. ZOCOR [Concomitant]
     Active Substance: SIMVASTATIN
     Dosage: 10 MG, UNK
  10. LISINOPRIL. [Concomitant]
     Active Substance: LISINOPRIL
     Dosage: 5 MG, UNK

REACTIONS (1)
  - Oedema [Recovering/Resolving]

NARRATIVE: CASE EVENT DATE: 20120221
